FAERS Safety Report 15678439 (Version 1)
Quarter: 2018Q4

REPORT INFORMATION
  Report Type: Spontaneous
  Country: JP (occurrence: JP)
  Receive Date: 20181201
  Receipt Date: 20181201
  Transmission Date: 20190205
  Serious: Yes (Other)
  Sender: FDA-Public Use
  Company Number: JP-UCBSA-2018053015

PATIENT
  Age: 30 Year
  Sex: Female

DRUGS (9)
  1. LEVETIRACETAM. [Suspect]
     Active Substance: LEVETIRACETAM
     Indication: EPILEPSY
     Dosage: UNKNOWN DOSE
     Route: 048
  2. METOCLOPRAMIDE. [Concomitant]
     Active Substance: METOCLOPRAMIDE
     Indication: PRODUCT USED FOR UNKNOWN INDICATION
     Dosage: UNKNOWN DOSE
  3. HEPARIN [Concomitant]
     Active Substance: HEPARIN SODIUM
     Indication: ANTITHROMBIN III DECREASED
     Dosage: 5,000 U TWICE DAILY
  4. HEPARIN [Concomitant]
     Active Substance: HEPARIN SODIUM
     Dosage: 3000 U
  5. HEPARIN [Concomitant]
     Active Substance: HEPARIN SODIUM
     Dosage: 38,000 U/DAY
  6. HEPARIN [Concomitant]
     Active Substance: HEPARIN SODIUM
     Dosage: 3,000 U
  7. HEPARIN [Concomitant]
     Active Substance: HEPARIN SODIUM
     Dosage: 40,000 U/DAY
     Route: 042
  8. HEPARIN [Concomitant]
     Active Substance: HEPARIN SODIUM
     Dosage: 10,000 U TWICE DAILY
  9. HEPARIN [Concomitant]
     Active Substance: HEPARIN SODIUM
     Dosage: 3000 U

REACTIONS (4)
  - Exposure during pregnancy [Unknown]
  - High risk pregnancy [Unknown]
  - Hypertension [Unknown]
  - Amniotic cavity infection [Unknown]
